FAERS Safety Report 4852398-8 (Version None)
Quarter: 2005Q4

REPORT INFORMATION
  Report Type: 
  Country: None (occurrence: None)
  Receive Date: 20051129
  Receipt Date: 20050808
  Transmission Date: 20060501
  Serious: No
  Sender: FDA-Public Use
  Company Number: WAES 0508USA01525

PATIENT
  Age: 65 Year
  Sex: Female

DRUGS (14)
  1. ZETIA [Suspect]
     Indication: BLOOD CHOLESTEROL INCREASED
     Dosage: 10 MG/DAILY/PO
     Route: 048
     Dates: start: 20040201
  2. ANTIVERT [Concomitant]
  3. DEMADEX [Concomitant]
  4. ECOTRIN [Concomitant]
  5. IMDUR [Concomitant]
  6. K-DUR 10 [Concomitant]
  7. LANOXIN [Concomitant]
  8. NITROLINGUAL [Concomitant]
  9. PRILOSEC [Concomitant]
  10. TENORMIN [Concomitant]
  11. VASOTEC [Concomitant]
  12. XANAX [Concomitant]
  13. [THERAPY UNSPECIFIED] [Concomitant]
  14. ALBUTEROL [Concomitant]

REACTIONS (2)
  - BACK PAIN [None]
  - STOMACH DISCOMFORT [None]
